FAERS Safety Report 4602707-X (Version None)
Quarter: 2005Q1

REPORT INFORMATION
  Report Type: 
  Country: None (occurrence: None)
  Receive Date: 20050307
  Receipt Date: 20050218
  Transmission Date: 20050727
  Serious: Yes (Hospitalization)
  Sender: FDA-Public Use
  Company Number: 1754

PATIENT
  Age: 60 Year
  Sex: Male
  Weight: 68.9467 kg

DRUGS (7)
  1. TARGRETIN [Suspect]
     Indication: NON-SMALL CELL LUNG CANCER
     Dosage: 750 MG DAILY PO
     Route: 048
     Dates: start: 20050124, end: 20050126
  2. ALBUTEROL [Concomitant]
  3. OXYCODONE HCL [Concomitant]
  4. OXYCODONE HCL [Concomitant]
  5. SIMVASTATIN [Concomitant]
  6. TIOTROPIUM BROMIDE [Concomitant]
  7. UNSPECIFIED THYROID MEDICATION [Concomitant]

REACTIONS (15)
  - ABNORMAL DREAMS [None]
  - ANXIETY [None]
  - CEREBRAL CYST [None]
  - CHILLS [None]
  - CONFUSIONAL STATE [None]
  - DELUSION [None]
  - HEADACHE [None]
  - HYPONATRAEMIA [None]
  - JOINT SWELLING [None]
  - NIGHT SWEATS [None]
  - OEDEMA PERIPHERAL [None]
  - PANIC ATTACK [None]
  - PARANOIA [None]
  - SUICIDAL IDEATION [None]
  - VISION BLURRED [None]
